FAERS Safety Report 8966598 (Version 1)
Quarter: 2012Q4

REPORT INFORMATION
  Report Type: Report from Study
  Country: ES (occurrence: ES)
  Receive Date: 20121214
  Receipt Date: 20121214
  Transmission Date: 20130627
  Serious: Yes (Hospitalization)
  Sender: FDA-Public Use
  Company Number: ES-BAXTER-2012BAX026704

PATIENT
  Age: 71 Year
  Sex: Female
  Weight: 73 kg

DRUGS (11)
  1. GENOXAL [Suspect]
     Indication: HER-2 POSITIVE BREAST CANCER
     Route: 042
     Dates: start: 20090706
  2. GENOXAL [Suspect]
     Route: 042
     Dates: start: 20090803
  3. TRASTUZUMAB [Suspect]
     Indication: HER-2 POSITIVE BREAST CANCER
     Dosage: loading dose
     Route: 042
  4. TRASTUZUMAB [Suspect]
     Dosage: maintenance dose
     Route: 042
     Dates: start: 20090706
  5. TRASTUZUMAB [Suspect]
     Route: 042
     Dates: start: 20090803
  6. FLUOROURACIL [Suspect]
     Indication: HER-2 POSITIVE BREAST CANCER
     Route: 042
     Dates: start: 20090706
  7. FLUOROURACIL [Suspect]
     Route: 042
     Dates: start: 20090803
  8. EPIRUBICIN [Suspect]
     Indication: HER-2 POSITIVE BREAST CANCER
     Route: 042
     Dates: start: 20090706
  9. EPIRUBICIN [Suspect]
     Route: 042
     Dates: start: 20090803
  10. PERTUZUMAB [Suspect]
     Indication: HER-2 POSITIVE BREAST CANCER
     Route: 042
     Dates: start: 20090330, end: 20090603
  11. DOCETAXEL [Suspect]
     Indication: HER-2 POSITIVE BREAST CANCER
     Route: 042
     Dates: start: 20090330, end: 20090603

REACTIONS (1)
  - Sepsis [Recovered/Resolved]
